FAERS Safety Report 7285891-1 (Version None)
Quarter: 2011Q1

REPORT INFORMATION
  Report Type: 
  Country: None (occurrence: None)
  Receive Date: 20110210
  Receipt Date: 20110207
  Transmission Date: 20110831
  Serious: Yes (Other)
  Sender: FDA-Public Use
  Company Number: CA-PFIZER INC-2010018554

PATIENT
  Age: 46 Year
  Sex: Male
  Weight: 77.098 kg

DRUGS (2)
  1. MOTRIN [Concomitant]
     Dosage: UNK
  2. CHAMPIX [Suspect]
     Indication: SMOKING CESSATION THERAPY
     Dosage: 0.5 MG, 1X/DAY
     Dates: start: 20080211

REACTIONS (4)
  - ANGER [None]
  - AGITATION [None]
  - IRRITABILITY [None]
  - PERSONALITY CHANGE [None]
